FAERS Safety Report 5383381-4 (Version None)
Quarter: 2007Q3

REPORT INFORMATION
  Report Type: 
  Country: None (occurrence: None)
  Receive Date: 20070710
  Receipt Date: 20070705
  Transmission Date: 20080115
  Serious: Yes (Other)
  Sender: FDA-Public Use
  Company Number: US-ASTRAZENECA-2007UW14053

PATIENT
  Age: 21 Year
  Sex: Female
  Weight: 48.9 kg

DRUGS (4)
  1. SEROQUEL [Suspect]
     Route: 048
  2. ANTABUSE [Concomitant]
  3. LAMICTAL [Concomitant]
  4. CAMPRAL [Concomitant]

REACTIONS (2)
  - ALANINE AMINOTRANSFERASE INCREASED [None]
  - HEPATITIS [None]
